FAERS Safety Report 5443634-8 (Version None)
Quarter: 2007Q3

REPORT INFORMATION
  Report Type: 
  Country: None (occurrence: None)
  Receive Date: 20070905
  Receipt Date: 20070829
  Transmission Date: 20080115
  Serious: Yes (Life-Threatening, Hospitalization)
  Sender: FDA-Public Use
  Company Number: AUWYE238929AUG07

PATIENT
  Sex: Male

DRUGS (11)
  1. SIROLIMUS [Suspect]
     Dosage: 3 MG DAILY
     Route: 048
     Dates: start: 20060707, end: 20060820
  2. SIROLIMUS [Suspect]
     Dosage: 12 MG BOLUS DOSE
     Route: 048
     Dates: start: 20060101, end: 20060101
  3. SIROLIMUS [Suspect]
     Dosage: 4 MG DAILY
     Route: 048
     Dates: start: 20060623, end: 20060706
  4. SIROLIMUS [Suspect]
     Dosage: 2 MG DAILY
     Route: 048
     Dates: start: 20060821, end: 20060828
  5. SIMVASTATIN [Concomitant]
     Dosage: UNKNOWN
     Route: 048
     Dates: start: 19961001
  6. PROGOUT [Concomitant]
  7. CYCLOSPORINE [Concomitant]
     Dosage: UNKNOWN
     Dates: start: 19961001
  8. PREDNISOLONE [Concomitant]
     Dosage: UNKNOWN
     Route: 048
     Dates: start: 19961001, end: 20060101
  9. RAMIPRIL [Concomitant]
     Dosage: UNKNOWN
     Route: 048
     Dates: start: 19961001
  10. ATENOLOL [Concomitant]
     Dosage: UNKNOWN
     Route: 048
     Dates: start: 19961001
  11. CALTRATE [Concomitant]
     Dosage: UNKNOWN
     Route: 048
     Dates: start: 19961001

REACTIONS (3)
  - FATIGUE [None]
  - LETHARGY [None]
  - PNEUMONITIS [None]
